FAERS Safety Report 5489350-8 (Version None)
Quarter: 2007Q4

REPORT INFORMATION
  Report Type: 
  Country: None (occurrence: None)
  Receive Date: 20071018
  Receipt Date: 20071015
  Transmission Date: 20080405
  Serious: Yes (Hospitalization)
  Sender: FDA-Public Use
  Company Number: US-BRISTOL-MYERS SQUIBB COMPANY-13942370

PATIENT
  Sex: Male

DRUGS (1)
  1. DEFINITY [Suspect]

REACTIONS (1)
  - CEREBROVASCULAR ACCIDENT [None]
